FAERS Safety Report 9348840 (Version 1)
Quarter: 2013Q2

REPORT INFORMATION
  Report Type: Spontaneous
  Country: US (occurrence: US)
  Receive Date: 20130614
  Receipt Date: 20130614
  Transmission Date: 20140414
  Serious: No
  Sender: FDA-Public Use
  Company Number: US-ASTRAZENECA-2013SE40944

PATIENT
  Sex: Female

DRUGS (5)
  1. CRESTOR [Suspect]
     Route: 048
     Dates: start: 2002, end: 2010
  2. CRESTOR [Suspect]
     Route: 048
     Dates: start: 2010, end: 2011
  3. CRESTOR [Suspect]
     Route: 048
  4. ASPIRIN [Concomitant]
     Indication: PROPHYLAXIS
     Route: 048
  5. MICARDIS [Concomitant]
     Indication: HYPERTENSION
     Route: 048

REACTIONS (5)
  - Arteriosclerosis [Unknown]
  - Discomfort [Recovered/Resolved]
  - Myalgia [Recovered/Resolved]
  - Glycosylated haemoglobin increased [Not Recovered/Not Resolved]
  - Intentional drug misuse [Recovered/Resolved]
